FAERS Safety Report 9806173 (Version 1)
Quarter: 2014Q1

REPORT INFORMATION
  Report Type: Spontaneous
  Country: CL (occurrence: CL)
  Receive Date: 20140109
  Receipt Date: 20140109
  Transmission Date: 20141002
  Serious: Yes (Other)
  Sender: FDA-Public Use
  Company Number: CL-PFIZER INC-2014004194

PATIENT
  Age: 93 Year
  Sex: Female

DRUGS (6)
  1. XALATAN [Suspect]
     Indication: GLAUCOMA
     Dosage: 1 GTT IN EACH EYE, 1X/DAY
     Route: 047
     Dates: start: 2012
  2. LOSARTAN [Concomitant]
     Dosage: 0.5 DF, 1X/DAY
  3. ALPRAZOLAM [Concomitant]
     Dosage: 0.5 DF, 1X/DAY
  4. OMEPRAZOLE [Concomitant]
     Dosage: 1 DF, 1X/DAY
  5. MINERALS NOS/VITAMINS NOS [Concomitant]
     Indication: LIVER DISORDER
     Dosage: UNK
     Dates: start: 201310
  6. ASPIRIN ^BAYER^ [Concomitant]

REACTIONS (4)
  - Liver disorder [Not Recovered/Not Resolved]
  - Cataract [Not Recovered/Not Resolved]
  - Headache [Not Recovered/Not Resolved]
  - Headache [Not Recovered/Not Resolved]
